FAERS Safety Report 9459903 (Version 1)
Quarter: 2013Q3

REPORT INFORMATION
  Report Type: Spontaneous
  Country: US (occurrence: US)
  Receive Date: 20130815
  Receipt Date: 20130815
  Transmission Date: 20140515
  Serious: No
  Sender: FDA-Public Use
  Company Number: US-009507513-1308USA005807

PATIENT
  Age: 55 Year
  Sex: 0

DRUGS (1)
  1. ZOCOR [Suspect]

REACTIONS (1)
  - Drug hypersensitivity [Unknown]
